FAERS Safety Report 20176799 (Version 1)
Quarter: 2021Q4

REPORT INFORMATION
  Report Type: Spontaneous
  Country: US (occurrence: None)
  Receive Date: 20211212
  Receipt Date: 20211212
  Transmission Date: 20220303
  Serious: Yes (Life-Threatening, Hospitalization)
  Sender: FDA-Public Use
  Company Number: None

PATIENT
  Age: 93 Year
  Sex: Female
  Weight: 51.75 kg

DRUGS (1)
  1. BAMLANIVIMAB\ETESEVIMAB [Suspect]
     Active Substance: BAMLANIVIMAB\ETESEVIMAB
     Indication: COVID-19
     Dates: start: 20211212, end: 20211212

REACTIONS (6)
  - Hypoxia [None]
  - Unresponsive to stimuli [None]
  - Bradycardia [None]
  - Anaphylactic shock [None]
  - Atrial fibrillation [None]
  - Hypotension [None]

NARRATIVE: CASE EVENT DATE: 20211212
